FAERS Safety Report 9736577 (Version 1)
Quarter: 2013Q4

REPORT INFORMATION
  Report Type: Spontaneous
  Country: US (occurrence: US)
  Receive Date: 20131206
  Receipt Date: 20131206
  Transmission Date: 20140711
  Serious: No
  Sender: FDA-Public Use
  Company Number: US-BIOGENIDEC-2013BI098126

PATIENT
  Age: 42 Year
  Sex: Female

DRUGS (19)
  1. TECFIDERA [Suspect]
     Indication: MULTIPLE SCLEROSIS
     Route: 048
     Dates: start: 20130930
  2. CYMBALTA [Concomitant]
  3. HUMULIN R INSULIN [Concomitant]
  4. PRINVIL [Concomitant]
  5. SOLU-MEDROL [Concomitant]
  6. XANAX [Concomitant]
  7. ANTIVERT [Concomitant]
  8. GLUCOPHAGE [Concomitant]
  9. LANTUS [Concomitant]
  10. INSULIN [Concomitant]
  11. FENTANYL PATCH [Concomitant]
  12. GLUCOTROL [Concomitant]
  13. ZOLOFT [Concomitant]
  14. COLACE [Concomitant]
  15. SENOKOT [Concomitant]
  16. CINNAMON [Concomitant]
  17. ASPIRIN [Concomitant]
  18. IBUPROFEN [Concomitant]
  19. VITAMIN E [Concomitant]

REACTIONS (1)
  - Somnolence [Unknown]
